FAERS Safety Report 17466699 (Version 1)
Quarter: 2020Q1

REPORT INFORMATION
  Report Type: Spontaneous
  Country: US (occurrence: US)
  Receive Date: 20200213
  Receipt Date: 20200213
  Transmission Date: 20200409
  Serious: Yes (Hospitalization)
  Sender: FDA-Public Use
  Company Number: None

PATIENT
  Age: 78 Year
  Sex: Male
  Weight: 78.15 kg

DRUGS (2)
  1. SULFAMETHOXAZOLE/TRIMETHOPRIM (SULFAMETHOXAZOLE 800MG [Suspect]
     Active Substance: SULFAMETHOXAZOLE\TRIMETHOPRIM
     Indication: CYSTITIS
     Route: 048
     Dates: start: 20190110, end: 20190119
  2. LANOXIN [Suspect]
     Active Substance: DIGOXIN
     Indication: ATRIAL FIBRILLATION
     Dosage: ?          OTHER FREQUENCY:AM;?
     Route: 048
     Dates: start: 19990101

REACTIONS (4)
  - Blood urea increased [None]
  - Toxicity to various agents [None]
  - Polyuria [None]
  - Blood creatinine increased [None]

NARRATIVE: CASE EVENT DATE: 20190121
